FAERS Safety Report 7395326 (Version 4)
Quarter: 2014Q1

REPORT INFORMATION
  Report Type: Spontaneous
  Country: US (occurrence: US)
  Receive Date: 20100521
  Receipt Date: 20140131
  Transmission Date: 20141002
  Serious: Yes (Hospitalization, Other)
  Sender: FDA-Public Use
  Company Number: US-BAYER-201022905NA

PATIENT
  Age: 30 Year
  Sex: Female
  Weight: 84.35 kg

DRUGS (4)
  1. YAZ [Suspect]
     Indication: CONTRACEPTION
     Dosage: UNK UNK, UNK
     Route: 048
     Dates: start: 200804, end: 200901
  2. WELLBUTRIN [Concomitant]
  3. ZIANA [Concomitant]
  4. ACYCLOVIR [ACICLOVIR] [Concomitant]
     Dosage: 200 MG, UNK

REACTIONS (9)
  - Biliary colic [None]
  - Abdominal pain [None]
  - Vomiting [None]
  - Gallbladder disorder [None]
  - Ejection fraction decreased [None]
  - Food intolerance [None]
  - Weight decreased [None]
  - Gallbladder cholesterolosis [None]
  - Gallbladder injury [Unknown]
